FAERS Safety Report 11391688 (Version 8)
Quarter: 2016Q1

REPORT INFORMATION
  Report Type: Spontaneous
  Country: GB (occurrence: GB)
  Receive Date: 20150818
  Receipt Date: 20160224
  Transmission Date: 20160525
  Serious: Yes (Other)
  Sender: FDA-Public Use
  Company Number: GB-ROCHE-1622577

PATIENT
  Sex: Female

DRUGS (1)
  1. HERCEPTIN [Suspect]
     Active Substance: TRASTUZUMAB
     Indication: PRODUCT USED FOR UNKNOWN INDICATION
     Dosage: CYCLE 7
     Route: 058

REACTIONS (13)
  - Incision site oedema [Unknown]
  - Pain [Unknown]
  - Sciatica [Not Recovered/Not Resolved]
  - Vertigo [Recovered/Resolved]
  - Lower respiratory tract infection [Unknown]
  - Arthralgia [Unknown]
  - Fatigue [Unknown]
  - Pain in extremity [Unknown]
  - Influenza like illness [Unknown]
  - Deafness [Unknown]
  - Back pain [Unknown]
  - Insomnia [Unknown]
  - Injection site pain [Unknown]
